FAERS Safety Report 9813981 (Version 1)
Quarter: 2014Q1

REPORT INFORMATION
  Report Type: Spontaneous
  Country: US (occurrence: US)
  Receive Date: 20140113
  Receipt Date: 20140113
  Transmission Date: 20141002
  Serious: Yes (Other)
  Sender: FDA-Public Use
  Company Number: US-ASTELLAS-2013US010553

PATIENT
  Age: 80 Year
  Sex: Male

DRUGS (2)
  1. MYRBETRIQ [Suspect]
     Indication: PRODUCT USED FOR UNKNOWN INDICATION
     Dosage: 25 MG, UID/QD
     Route: 048
     Dates: start: 20131001, end: 20131004
  2. UNIRETIC                           /00206601/ [Concomitant]
     Indication: HYPERTENSION
     Dosage: UNK
     Route: 065

REACTIONS (9)
  - Hypertension [Unknown]
  - Foreign body sensation in eyes [Unknown]
  - Nightmare [Unknown]
  - Anxiety [Unknown]
  - Chills [Unknown]
  - Emotional disorder [Unknown]
  - Photophobia [Unknown]
  - Dizziness [Unknown]
  - Nausea [Unknown]
